FAERS Safety Report 12582241 (Version 1)
Quarter: 2016Q3

REPORT INFORMATION
  Report Type: Spontaneous
  Country: US (occurrence: None)
  Receive Date: 20160721
  Receipt Date: 20160721
  Transmission Date: 20161109
  Serious: No
  Sender: FDA-Public Use
  Company Number: None

PATIENT
  Age: 51 Year
  Sex: Female
  Weight: 85.73 kg

DRUGS (9)
  1. METOPROLOL. [Concomitant]
     Active Substance: METOPROLOL
  2. VITAMIN D [Concomitant]
     Active Substance: CHOLECALCIFEROL
  3. DICFLONAC [Concomitant]
  4. XELJANZ [Suspect]
     Active Substance: TOFACITINIB CITRATE
     Indication: RHEUMATOID ARTHRITIS
     Dosage: 60 TABLETS TWICE A DAY
     Route: 048
     Dates: start: 20160203, end: 20160630
  5. HYDROCHOLTHIAZIDE [Concomitant]
  6. GABAPENTIN. [Concomitant]
     Active Substance: GABAPENTIN
  7. POTASSIUM [Concomitant]
     Active Substance: POTASSIUM
  8. SIMVASTAVIN [Concomitant]
  9. BAYER ASPI [Concomitant]

REACTIONS (7)
  - Dyspnoea [None]
  - Rhinorrhoea [None]
  - Sensation of foreign body [None]
  - Chest discomfort [None]
  - Dysuria [None]
  - Musculoskeletal discomfort [None]
  - Burning sensation [None]

NARRATIVE: CASE EVENT DATE: 20160601
